FAERS Safety Report 24585379 (Version 1)
Quarter: 2024Q4

REPORT INFORMATION
  Report Type: Spontaneous
  Country: SK (occurrence: SK)
  Receive Date: 20241106
  Receipt Date: 20241106
  Transmission Date: 20250115
  Serious: Yes (Other)
  Sender: INCYTE
  Company Number: SK-002147023-NVSC2024SK211325

PATIENT

DRUGS (2)
  1. RUXOLITINIB [Suspect]
     Active Substance: RUXOLITINIB
     Indication: Myelofibrosis
     Dosage: 20 MG, BID
     Route: 065
  2. EPO [OENOTHERA BIENNIS OIL] [Concomitant]
     Indication: Product used for unknown indication
     Dosage: UNK
     Route: 065

REACTIONS (4)
  - Herpes zoster [Unknown]
  - Pancytopenia [Unknown]
  - Full blood count decreased [Unknown]
  - Thrombocytopenia [Unknown]
